FAERS Safety Report 15773793 (Version 1)
Quarter: 2018Q4

REPORT INFORMATION
  Report Type: Spontaneous
  Country: FR (occurrence: FR)
  Receive Date: 20181229
  Receipt Date: 20181229
  Transmission Date: 20190205
  Serious: Yes (Life-Threatening)
  Sender: FDA-Public Use
  Company Number: FR-BEH-2018097848

PATIENT
  Age: 19 Year
  Sex: Male
  Weight: 70 kg

DRUGS (3)
  1. RIASTAP [Suspect]
     Active Substance: FIBRINOGEN HUMAN
     Dosage: UNK
     Route: 042
  2. RIASTAP [Suspect]
     Active Substance: FIBRINOGEN HUMAN
     Indication: SHOCK HAEMORRHAGIC
     Dosage: 2 G, TOT
     Route: 042
     Dates: start: 20181209, end: 20181209
  3. RIASTAP [Suspect]
     Active Substance: FIBRINOGEN HUMAN
     Dosage: UNK
     Route: 042

REACTIONS (1)
  - Anaphylactic shock [Recovered/Resolved]

NARRATIVE: CASE EVENT DATE: 20181209
